FAERS Safety Report 16180611 (Version 1)
Quarter: 2019Q2

REPORT INFORMATION
  Report Type: Spontaneous
  Country: US (occurrence: US)
  Receive Date: 20190410
  Receipt Date: 20190410
  Transmission Date: 20190711
  Serious: Yes (Other)
  Sender: FDA-Public Use
  Company Number: US-MYLANLABS-2019M1034451

PATIENT
  Age: 80 Year
  Sex: Female

DRUGS (4)
  1. VANCOMYCIN [Suspect]
     Active Substance: VANCOMYCIN
     Indication: STAPHYLOCOCCAL INFECTION
     Dosage: UNK
     Route: 042
  2. RIFAMPIN. [Concomitant]
     Active Substance: RIFAMPIN
     Indication: STAPHYLOCOCCAL INFECTION
     Route: 042
  3. VANCOMYCIN [Suspect]
     Active Substance: VANCOMYCIN
     Indication: ARTHRITIS INFECTIVE
     Dosage: RECEIVED THROUGH VANCOMYCIN-LOADED CEMENT JOINT SPACER
     Route: 050
  4. RIFAMPIN. [Concomitant]
     Active Substance: RIFAMPIN
     Indication: ARTHRITIS INFECTIVE

REACTIONS (2)
  - Insomnia [Recovering/Resolving]
  - Linear IgA disease [Recovering/Resolving]
